FAERS Safety Report 10683418 (Version 1)
Quarter: 2014Q4

REPORT INFORMATION
  Report Type: Spontaneous
  Country: JP (occurrence: JP)
  Receive Date: 20141230
  Receipt Date: 20141230
  Transmission Date: 20150529
  Serious: Yes (Other)
  Sender: FDA-Public Use
  Company Number: JP-GLAXOSMITHKLINE-JP2014GSK040819

PATIENT
  Age: 64 Year
  Sex: Male

DRUGS (2)
  1. FLUVASTATIN [Suspect]
     Active Substance: FLUVASTATIN SODIUM
  2. OMEGA-3-ACID ETHYL ESTERS. [Suspect]
     Active Substance: OMEGA-3-ACID ETHYL ESTERS
     Indication: PRODUCT USED FOR UNKNOWN INDICATION
     Dosage: 2000 MG, QD
     Route: 048
     Dates: start: 20141006

REACTIONS (1)
  - Blood triglycerides increased [Unknown]
